FAERS Safety Report 10472181 (Version 1)
Quarter: 2014Q3

REPORT INFORMATION
  Report Type: Spontaneous
  Country: US (occurrence: None)
  Receive Date: 20140923
  Receipt Date: 20140923
  Transmission Date: 20150326
  Serious: Yes (Life-Threatening, Hospitalization)
  Sender: FDA-Public Use
  Company Number: None

PATIENT
  Age: 15 Year
  Sex: Female
  Weight: 50 kg

DRUGS (9)
  1. BACTRIM DS [Concomitant]
     Active Substance: SULFAMETHOXAZOLE\TRIMETHOPRIM
  2. LEXAPRO [Concomitant]
     Active Substance: ESCITALOPRAM OXALATE
  3. EMEND (FOSAPREPITANT DIMEGLUMINE) [Suspect]
     Active Substance: FOSAPREPITANT DIMEGLUMINE
     Indication: NAUSEA
     Dosage: 150 MG ?ONCE ON 2 OCCASION?INTRAVENOUS
     Route: 042
     Dates: start: 20131101, end: 20131119
  4. ZOFRAN [Concomitant]
     Active Substance: ONDANSETRON HYDROCHLORIDE
  5. EMEND (FOSAPREPITANT DIMEGLUMINE) [Suspect]
     Active Substance: FOSAPREPITANT DIMEGLUMINE
     Indication: VOMITING
     Dosage: 150 MG ?ONCE ON 2 OCCASION?INTRAVENOUS
     Route: 042
     Dates: start: 20131101, end: 20131119
  6. 1/2 NS WITH 10MEQ KCL [Concomitant]
  7. NS [Concomitant]
     Active Substance: SODIUM CHLORIDE
  8. PERIDEX [Concomitant]
     Active Substance: CHLORHEXIDINE GLUCONATE
  9. DECADRON [Concomitant]
     Active Substance: DEXAMETHASONE

REACTIONS (1)
  - Anaphylactic reaction [None]

NARRATIVE: CASE EVENT DATE: 20131119
